FAERS Safety Report 8743275 (Version 2)
Quarter: 2012Q4

REPORT INFORMATION
  Report Type: 
  Country: GB (occurrence: GB)
  Receive Date: 20120824
  Receipt Date: 20121010
  Transmission Date: 20130627
  Serious: Yes (Other)
  Sender: FDA-Public Use
  Company Number: GB-B.I. PHARMACEUTICALS,INC./RIDGEFIELD-2012-UK-01093UK

PATIENT
  Age: 70 Year
  Sex: Male

DRUGS (4)
  1. PRADAXA [Suspect]
     Indication: ISCHAEMIC STROKE
     Dosage: 150 NR
     Route: 048
     Dates: start: 20120619
  2. LERCANIDIPINE [Concomitant]
     Indication: HYPERTENSION
     Dosage: 20 NR
     Route: 048
  3. SIMVASTATIN [Concomitant]
     Indication: BLOOD CHOLESTEROL
     Dosage: 40 NR
     Route: 048
  4. SOTALOL [Concomitant]
     Indication: ATRIAL FIBRILLATION
     Dosage: 160 NR
     Route: 048

REACTIONS (1)
  - Hyperthyroidism [Not Recovered/Not Resolved]
